FAERS Safety Report 6084524-X (Version None)
Quarter: 2009Q1

REPORT INFORMATION
  Report Type: 
  Country: None (occurrence: None)
  Receive Date: 20090219
  Receipt Date: 20090218
  Transmission Date: 20090719
  Serious: Yes (Death, Other)
  Sender: FDA-Public Use
  Company Number: US-PFIZER INC-2008151178

PATIENT
  Age: 38 Year
  Sex: Male

DRUGS (4)
  1. CHANTIX [Suspect]
     Indication: SMOKING CESSATION THERAPY
     Dosage: 1 MG, 2X/DAY
     Route: 048
     Dates: start: 20081201
  2. METHADONE [Suspect]
     Indication: BACK PAIN
     Dosage: 10 MG, 3X/DAY
     Dates: start: 20070101
  3. WARFARIN [Concomitant]
  4. DILANTIN [Concomitant]
     Indication: CONVULSION
     Dosage: UNK

REACTIONS (3)
  - CARDIAC FAILURE [None]
  - MICTURITION URGENCY [None]
  - MIDDLE INSOMNIA [None]
